FAERS Safety Report 9395738 (Version 1)
Quarter: 2013Q3

REPORT INFORMATION
  Report Type: Spontaneous
  Country: US (occurrence: US)
  Receive Date: 20130711
  Receipt Date: 20130711
  Transmission Date: 20140515
  Serious: Yes (Other)
  Sender: FDA-Public Use
  Company Number: US-PFIZER INC-2013203293

PATIENT
  Age: 29 Year
  Sex: Male
  Weight: 56.7 kg

DRUGS (1)
  1. CHANTIX [Suspect]
     Indication: SMOKING CESSATION THERAPY
     Dosage: UNK
     Route: 048
     Dates: start: 2012, end: 2012

REACTIONS (8)
  - Bipolar disorder [Recovering/Resolving]
  - Schizophrenia [Recovering/Resolving]
  - Anxiety [Recovering/Resolving]
  - Aggression [Unknown]
  - Drug abuse [Not Recovered/Not Resolved]
  - Drug screen positive [Unknown]
  - Feeling abnormal [Unknown]
  - Fear [Recovering/Resolving]
